FAERS Safety Report 23202991 (Version 1)
Quarter: 2023Q4

REPORT INFORMATION
  Report Type: Spontaneous
  Country: IT (occurrence: IT)
  Receive Date: 20231120
  Receipt Date: 20231120
  Transmission Date: 20240109
  Serious: Yes (Other)
  Sender: FDA-Public Use
  Company Number: IT-MYLANLABS-2023M1123075

PATIENT
  Age: 46 Year
  Sex: Female

DRUGS (6)
  1. TRANEXAMIC ACID [Suspect]
     Active Substance: TRANEXAMIC ACID
     Indication: Prophylaxis
     Dosage: 3 GRAM, QD
     Route: 065
  2. ICATIBANT [Suspect]
     Active Substance: ICATIBANT ACETATE
     Indication: Prophylaxis
     Dosage: UNK
     Route: 065
  3. DANAZOL [Suspect]
     Active Substance: DANAZOL
     Indication: Prophylaxis
     Dosage: 200 MILLIGRAM, QD
     Route: 065
  4. DANAZOL [Suspect]
     Active Substance: DANAZOL
     Dosage: 200 MILLIGRAM, QOD (EVERY OTHER DAY)
     Route: 065
  5. DANAZOL [Suspect]
     Active Substance: DANAZOL
     Dosage: 200 MILLIGRAM, QD, REINTRODUCED
     Route: 065
  6. LANADELUMAB [Suspect]
     Active Substance: LANADELUMAB
     Indication: Prophylaxis
     Dosage: 300 MILLIGRAM, BIWEEKLY
     Route: 065

REACTIONS (2)
  - Treatment failure [Unknown]
  - Off label use [Unknown]
